FAERS Safety Report 8495253-7 (Version None)
Quarter: 2012Q3

REPORT INFORMATION
  Report Type: 
  Country: None (occurrence: None)
  Receive Date: 20120709
  Receipt Date: 20120702
  Transmission Date: 20120928
  Serious: Yes (Hospitalization)
  Sender: FDA-Public Use
  Company Number: US-BAYER-2012-044208

PATIENT
  Age: 20 Year
  Sex: Female

DRUGS (6)
  1. YAZ [Suspect]
     Indication: OLIGOMENORRHOEA
  2. YAZ [Suspect]
     Indication: MENORRHAGIA
     Dosage: UNK
     Dates: start: 20080601, end: 20090601
  3. OXYCODONE HCL [Concomitant]
  4. DILAUDID [Concomitant]
  5. PROTONIX [Concomitant]
     Indication: GASTROOESOPHAGEAL REFLUX DISEASE
  6. VITAMIN B COMPLEX CAP [Concomitant]
     Dosage: 1 [TO] 2 DAILY
     Route: 048
     Dates: start: 20090519, end: 20090813

REACTIONS (5)
  - EMOTIONAL DISTRESS [None]
  - PULMONARY EMBOLISM [None]
  - INJURY [None]
  - PAIN [None]
  - ANHEDONIA [None]
